FAERS Safety Report 19525747 (Version 1)
Quarter: 2021Q3

REPORT INFORMATION
  Report Type: Spontaneous
  Country: US (occurrence: US)
  Receive Date: 20210713
  Receipt Date: 20210713
  Transmission Date: 20211014
  Serious: No
  Sender: FDA-Public Use
  Company Number: None

PATIENT

DRUGS (2)
  1. FIRMAGON [Suspect]
     Active Substance: DEGARELIX ACETATE
  2. FIRMAGON [Concomitant]
     Active Substance: DEGARELIX ACETATE

REACTIONS (4)
  - Weight decreased [None]
  - Depression [None]
  - Decreased appetite [None]
  - Asthenia [None]
